FAERS Safety Report 4716575-9 (Version None)
Quarter: 2005Q3

REPORT INFORMATION
  Report Type: 
  Country: None (occurrence: None)
  Receive Date: 20050714
  Receipt Date: 20050630
  Transmission Date: 20060218
  Serious: Yes (Other)
  Sender: FDA-Public Use
  Company Number: 2005JP001138

PATIENT
  Age: 3 Year
  Sex: Female

DRUGS (1)
  1. PROGRAF [Suspect]
     Dosage: ORAL
     Route: 048
     Dates: start: 20041201

REACTIONS (1)
  - HEPATIC STEATOSIS [None]
